FAERS Safety Report 8174364-X (Version None)
Quarter: 2012Q1

REPORT INFORMATION
  Report Type: 
  Country: None (occurrence: None)
  Receive Date: 20120229
  Receipt Date: 20120220
  Transmission Date: 20120608
  Serious: Yes (Other)
  Sender: FDA-Public Use
  Company Number: US-ASTRAZENECA-2012SE11786

PATIENT
  Age: 55 Year
  Sex: Female
  Weight: 66.2 kg

DRUGS (3)
  1. CALCIUM [Concomitant]
  2. VITAMIN D SUPPLEMENTS [Concomitant]
  3. NEXIUM [Suspect]
     Indication: GASTROOESOPHAGEAL REFLUX DISEASE
     Route: 048

REACTIONS (7)
  - MUSCULOSKELETAL DISCOMFORT [None]
  - GAIT DISTURBANCE [None]
  - BONE DISORDER [None]
  - FALL [None]
  - ARTHRITIS [None]
  - RIB FRACTURE [None]
  - DRUG DOSE OMISSION [None]
